FAERS Safety Report 13420753 (Version 1)
Quarter: 2017Q2

REPORT INFORMATION
  Report Type: Report from Study
  Country: US (occurrence: US)
  Receive Date: 20170409
  Receipt Date: 20170409
  Transmission Date: 20170830
  Serious: Yes (Hospitalization, Other)
  Sender: FDA-Public Use
  Company Number: US-TEVA-695925USA

PATIENT
  Age: 46 Year
  Sex: Female

DRUGS (15)
  1. CALCIUM [Concomitant]
     Active Substance: CALCIUM
  2. NUVIGIL [Concomitant]
     Active Substance: ARMODAFINIL
  3. XANAX [Concomitant]
     Active Substance: ALPRAZOLAM
  4. GINKOBA [Concomitant]
     Active Substance: GINKGO
  5. REGLAN [Concomitant]
     Active Substance: METOCLOPRAMIDE HYDROCHLORIDE
  6. ANDROGEL [Concomitant]
     Active Substance: TESTOSTERONE
     Dosage: PUMP
  7. VITAMIN B COMPLEX [Concomitant]
     Active Substance: CYANOCOBALAMIN\DEXPANTHENOL\NIACINAMIDE\PYRIDOXINE HYDROCHLORIDE\RIBOFLAVIN 5^-PHOSPHATE SODIUM\THIAMINE HYDROCHLORIDE\VITAMIN B COMPLEX
  8. VITAMIN D [Concomitant]
     Active Substance: CHOLECALCIFEROL
  9. MAGNESIUM [Concomitant]
     Active Substance: MAGNESIUM
  10. OMEPRAZOLE. [Concomitant]
     Active Substance: OMEPRAZOLE
     Dosage: 20
  11. COPAXONE [Suspect]
     Active Substance: GLATIRAMER ACETATE
     Indication: MULTIPLE SCLEROSIS
     Route: 058
  12. SYNTHROID [Concomitant]
     Active Substance: LEVOTHYROXINE SODIUM
  13. BACLOFEN. [Concomitant]
     Active Substance: BACLOFEN
  14. GLUCOSAMINE [Concomitant]
     Active Substance: GLUCOSAMINE
  15. GARLIC  OIL [Concomitant]
     Active Substance: GARLIC OIL

REACTIONS (4)
  - Uterine leiomyoma [Unknown]
  - Hydrosalpinx [Recovering/Resolving]
  - Pelvic abscess [Recovered/Resolved]
  - Pelvic infection [Unknown]

NARRATIVE: CASE EVENT DATE: 20160829
